FAERS Safety Report 5304838-8 (Version None)
Quarter: 2007Q2

REPORT INFORMATION
  Report Type: 
  Country: None (occurrence: None)
  Receive Date: 20070423
  Receipt Date: 20070418
  Transmission Date: 20071010
  Serious: Yes (Hospitalization, Other)
  Sender: FDA-Public Use
  Company Number: ES-BOEHRINGER INGELHEIM PHARMACEUTICALS, INC.-2007-DE-02222DE

PATIENT
  Sex: Male

DRUGS (11)
  1. AGGRENOX [Suspect]
     Indication: CEREBROVASCULAR ACCIDENT PROPHYLAXIS
     Dates: start: 20070307
  2. AGGRENOX [Suspect]
  3. XAGRID [Suspect]
  4. CANDESARTAN [Concomitant]
  5. TRIAMTEREN [Concomitant]
  6. TRIAMTEREN [Concomitant]
  7. HYDROCHLOROTHIAZIDE [Concomitant]
  8. HYDROCHLOROTHIAZIDE [Concomitant]
  9. ATORVASTATIN CALCIUM [Concomitant]
  10. BISOPRODOL FUMARATE [Concomitant]
  11. ASPIRIN [Concomitant]

REACTIONS (4)
  - BLOOD CREATININE DECREASED [None]
  - DIARRHOEA [None]
  - DRUG INTOLERANCE [None]
  - RENAL FAILURE [None]
